FAERS Safety Report 11719398 (Version 2)
Quarter: 2015Q4

REPORT INFORMATION
  Report Type: Spontaneous
  Country: SE (occurrence: SE)
  Receive Date: 20151110
  Receipt Date: 20151230
  Transmission Date: 20160304
  Serious: Yes (Other)
  Sender: FDA-Public Use
  Company Number: SE-MYLANLABS-2015M1037784

PATIENT

DRUGS (2)
  1. FURIX [Concomitant]
     Active Substance: FUROSEMIDE
     Indication: PRODUCT USED FOR UNKNOWN INDICATION
     Dosage: (THREE TABLETS AT 10 AM AND ONE TABLET AT 2 PM)
  2. SOTALOL MYLAN 80 MG TABLETTER [Suspect]
     Active Substance: SOTALOL
     Dosage: 80 MG, QID

REACTIONS (6)
  - Extrasystoles [Recovered/Resolved]
  - Feeling abnormal [Recovered/Resolved]
  - Peripheral swelling [Recovered/Resolved]
  - Palpitations [Recovered/Resolved]
  - Tension headache [Recovered/Resolved]
  - Withdrawal syndrome [Recovered/Resolved]
